FAERS Safety Report 5216726-6 (Version None)
Quarter: 2007Q1

REPORT INFORMATION
  Report Type: 
  Country: None (occurrence: None)
  Receive Date: 20070118
  Receipt Date: 20070104
  Transmission Date: 20070707
  Serious: Yes (Death, Life-Threatening, Hospitalization)
  Sender: FDA-Public Use
  Company Number: POMP-10859

PATIENT
  Age: 20 Month
  Sex: Female
  Weight: 8 kg

DRUGS (7)
  1. MYOZYME [Suspect]
     Indication: GLYCOGEN STORAGE DISEASE TYPE II
     Dosage: 20 MG/KG QWK IV
     Route: 042
     Dates: start: 20061101, end: 20061220
  2. MYOZYME [Suspect]
     Indication: GLYCOGEN STORAGE DISEASE TYPE II
     Dosage: 20 MG/KG Q2WKS IV
     Route: 042
     Dates: start: 20060505, end: 20061101
  3. ALPHA-GLUCOSIDASE (HUMAN, RECOMBINANT, CHO CELLS, GENZYME) [Suspect]
     Indication: GLYCOGEN STORAGE DISEASE TYPE II
     Dosage: 20 MG/KG Q2WKS IV
     Route: 042
     Dates: start: 20051021, end: 20060401
  4. HCL THIAZIDE [Concomitant]
  5. SPIRONOLACTONE [Concomitant]
  6. DIGITALIS TAB [Concomitant]
  7. ENALAPRIL MALEATE [Concomitant]

REACTIONS (19)
  - ABDOMINAL INFECTION [None]
  - ACUTE RESPIRATORY FAILURE [None]
  - ALANINE AMINOTRANSFERASE INCREASED [None]
  - ANTIBODY TEST POSITIVE [None]
  - ASTHENIA [None]
  - CARDIAC FAILURE [None]
  - CARDIAC FAILURE ACUTE [None]
  - CARDIAC INDEX INCREASED [None]
  - CARDIOPULMONARY FAILURE [None]
  - DIARRHOEA [None]
  - GENERAL PHYSICAL HEALTH DETERIORATION [None]
  - LOWER RESPIRATORY TRACT INFECTION [None]
  - MOOD ALTERED [None]
  - MUSCULAR WEAKNESS [None]
  - PNEUMONIA [None]
  - PYREXIA [None]
  - THERAPEUTIC RESPONSE DECREASED [None]
  - VIRAL INFECTION [None]
  - WEIGHT DECREASED [None]
